FAERS Safety Report 14364426 (Version 1)
Quarter: 2018Q1

REPORT INFORMATION
  Report Type: Spontaneous
  Country: CN (occurrence: CN)
  Receive Date: 20180108
  Receipt Date: 20180108
  Transmission Date: 20180509
  Serious: Yes (Other)
  Sender: FDA-Public Use
  Company Number: CN-PFIZER INC-2018004608

PATIENT
  Age: 32 Year
  Sex: Female
  Weight: 52.8 kg

DRUGS (3)
  1. PHARMORUBICIN [Suspect]
     Active Substance: EPIRUBICIN
     Indication: BREAST NEOPLASM
     Dosage: 127 MG, 1X/DAY
     Route: 041
     Dates: start: 20171021, end: 20171021
  2. SODIUM CHLORIDE. [Concomitant]
     Active Substance: SODIUM CHLORIDE
     Indication: BREAST NEOPLASM
     Dosage: 100 ML, 1X/DAY
     Route: 041
     Dates: start: 20171021, end: 20171021
  3. ENDOXAN /00021101/ [Suspect]
     Active Substance: CYCLOPHOSPHAMIDE
     Indication: BREAST NEOPLASM
     Dosage: 760 MG, 1X/DAY
     Route: 041
     Dates: start: 20171021, end: 20171021

REACTIONS (3)
  - Bone marrow failure [Recovering/Resolving]
  - White blood cell count decreased [Recovering/Resolving]
  - Neutrophil count decreased [Recovering/Resolving]

NARRATIVE: CASE EVENT DATE: 20171024
